FAERS Safety Report 7686119-0 (Version None)
Quarter: 2011Q3

REPORT INFORMATION
  Report Type: 
  Country: None (occurrence: None)
  Receive Date: 20110816
  Receipt Date: 20110811
  Transmission Date: 20111222
  Serious: Yes (Death)
  Sender: FDA-Public Use
  Company Number: PHEH2011US01322

PATIENT
  Sex: Female

DRUGS (3)
  1. EXJADE [Suspect]
     Dosage: 1500 MG, EVERY DAY
     Route: 048
  2. MAGNESIUM [Concomitant]
  3. HYDROCHLOROT [Concomitant]

REACTIONS (1)
  - DEATH [None]
